FAERS Safety Report 10314596 (Version 1)
Quarter: 2014Q3

REPORT INFORMATION
  Report Type: Spontaneous
  Country: DE (occurrence: DE)
  Receive Date: 20140718
  Receipt Date: 20140718
  Transmission Date: 20150326
  Serious: No
  Sender: FDA-Public Use
  Company Number: DE-SA-2014SA092047

PATIENT
  Age: 75 Year
  Sex: Male

DRUGS (3)
  1. PHENPROCOUMON [Concomitant]
     Active Substance: PHENPROCOUMON
  2. ANTIHYPERTENSIVES [Concomitant]
     Active Substance: UNSPECIFIED INGREDIENT
  3. MULTAQ [Suspect]
     Active Substance: DRONEDARONE
     Indication: PRODUCT USED FOR UNKNOWN INDICATION
     Route: 048

REACTIONS (1)
  - Blood creatinine increased [Not Recovered/Not Resolved]
